FAERS Safety Report 18667146 (Version 1)
Quarter: 2020Q4

REPORT INFORMATION
  Report Type: Report from Study
  Country: UA (occurrence: UA)
  Receive Date: 20201228
  Receipt Date: 20201228
  Transmission Date: 20210114
  Serious: Yes (Death, Life-Threatening, Hospitalization)
  Sender: FDA-Public Use
  Company Number: UA-JNJFOC-20200618463

PATIENT
  Age: 36 Year
  Sex: Female
  Weight: 66.7 kg

DRUGS (16)
  1. USTEKINUMAB [Suspect]
     Active Substance: USTEKINUMAB
     Indication: SYSTEMIC LUPUS ERYTHEMATOSUS
     Route: 042
     Dates: start: 20190822, end: 20190822
  2. USTEKINUMAB [Suspect]
     Active Substance: USTEKINUMAB
     Route: 058
     Dates: start: 20200206
  3. MYCOPHENOLATE MOFETIL. [Concomitant]
     Active Substance: MYCOPHENOLATE MOFETIL
     Indication: SYSTEMIC LUPUS ERYTHEMATOSUS
     Dosage: 1.0 GRAM TWICE DAILY
     Route: 048
     Dates: start: 20190111
  4. VALSACOR [Concomitant]
     Active Substance: VALSARTAN
     Indication: HYPERTENSION
  5. USTEKINUMAB [Suspect]
     Active Substance: USTEKINUMAB
     Route: 058
     Dates: start: 20200331
  6. ALENDRONIC ACID [Concomitant]
     Active Substance: ALENDRONIC ACID
     Indication: OSTEOPENIA
     Dosage: WEEKLY
     Route: 048
     Dates: start: 20190611
  7. USTEKINUMAB [Suspect]
     Active Substance: USTEKINUMAB
     Route: 058
     Dates: start: 20191212
  8. USTEKINUMAB [Suspect]
     Active Substance: USTEKINUMAB
     Route: 058
     Dates: start: 20200528
  9. METHYLPREDNISOLONE. [Concomitant]
     Active Substance: METHYLPREDNISOLONE
     Indication: SYSTEMIC LUPUS ERYTHEMATOSUS
     Dosage: DAILY
     Route: 048
     Dates: start: 20170221
  10. CALCIUM CARBONATE W/COLECALCIFEROL [Concomitant]
     Active Substance: CALCIUM CARBONATE\CHOLECALCIFEROL
     Indication: OSTEOPENIA
     Dosage: 2 TAB DAILY
     Route: 048
     Dates: start: 20190611
  11. USTEKINUMAB [Suspect]
     Active Substance: USTEKINUMAB
     Route: 058
     Dates: start: 20191017
  12. BISOPROLOL [Concomitant]
     Active Substance: BISOPROLOL
     Indication: LEFT VENTRICULAR HYPERTROPHY
     Dosage: DAILY
     Route: 048
     Dates: start: 20190611
  13. PLAQUENIL                          /00072602/ [Concomitant]
     Active Substance: HYDROXYCHLOROQUINE DIPHOSPHATE
     Indication: SYSTEMIC LUPUS ERYTHEMATOSUS
     Dosage: DAILY
     Route: 048
     Dates: start: 20170221
  14. AMLODIPINE [Concomitant]
     Active Substance: AMLODIPINE BESYLATE
     Indication: HYPERTENSION
     Dosage: DAILY
     Route: 048
     Dates: start: 20190611
  15. EDARBYCLOR [Concomitant]
     Active Substance: AZILSARTAN KAMEDOXOMIL\CHLORTHALIDONE
     Indication: HYPERTENSION
     Dosage: 1TAB DAILY
     Route: 048
     Dates: start: 20190611
  16. NIMOTOP [Concomitant]
     Active Substance: NIMODIPINE
     Indication: HYPERTENSION

REACTIONS (1)
  - Haemorrhagic stroke [Fatal]

NARRATIVE: CASE EVENT DATE: 20200608
